FAERS Safety Report 7103783 (Version 3)
Quarter: 2012Q4

REPORT INFORMATION
  Report Type: 
  Country: US (occurrence: None)
  Receive Date: 20090826
  Receipt Date: 20120912
  Transmission Date: 20130627
  Serious: Yes (Other)
  Sender: FDA-Public Use
  Company Number: 2009AP003348

PATIENT
  Age: 76 Year
  Sex: Male

DRUGS (2)
  1. AMIODARONE HYDROCHLORIDE [Suspect]
     Indication: VENTRICULAR TACHYARRHYTHMIA
     Dosage: 200 MG; 100 MG;
  2. AMIODARONE HYDROCHLORIDE [Suspect]
     Indication: VENTRICULAR TACHYARRHYTHMIA
     Dosage: 200 MG; 100 MG;

REACTIONS (2)
  - Neurotoxicity [None]
  - Tremor [None]
